FAERS Safety Report 7530160-5 (Version None)
Quarter: 2011Q2

REPORT INFORMATION
  Report Type: 
  Country: None (occurrence: None)
  Receive Date: 20110607
  Receipt Date: 20110523
  Transmission Date: 20111010
  Serious: Yes (Other)
  Sender: FDA-Public Use
  Company Number: CH-JNJFOC-20110602461

PATIENT
  Age: 65 Year
  Sex: Male
  Weight: 93 kg

DRUGS (11)
  1. REMICADE [Suspect]
     Dosage: 12 INFUSIONS
     Route: 042
     Dates: start: 20090101
  2. SURMONTIL [Concomitant]
  3. MAGNESIUM SULFATE [Concomitant]
  4. MARCOUMAR [Concomitant]
     Dosage: DOSE ACCORDING TO INR
  5. REMICADE [Suspect]
     Indication: CROHN'S DISEASE
     Dosage: 12 INFUSIONS
     Route: 042
     Dates: start: 20110427
  6. ZINC [Concomitant]
  7. CALCIMAGON [Concomitant]
  8. LIORESAL [Concomitant]
  9. AMLODIPIN-MEPHA [Concomitant]
  10. MICARDIS HCT [Concomitant]
     Dosage: DOSE 80/12.5MG
  11. QUANTALAN [Concomitant]
     Dosage: ^2(-3) X1^

REACTIONS (1)
  - RENAL FAILURE [None]
